FAERS Safety Report 7585906-7 (Version None)
Quarter: 2011Q2

REPORT INFORMATION
  Report Type: 
  Country: None (occurrence: None)
  Receive Date: 20110624
  Receipt Date: 20110613
  Transmission Date: 20111010
  Serious: Yes (Hospitalization)
  Sender: FDA-Public Use
  Company Number: 2010005711

PATIENT
  Age: 66 Year
  Sex: Female
  Weight: 68 kg

DRUGS (14)
  1. TOPROL-XL [Concomitant]
  2. METFORMIN HCL [Concomitant]
  3. ASPIRIN [Concomitant]
  4. FISH OIL [Concomitant]
  5. DITROPAN XL [Concomitant]
  6. IMODIUM [Concomitant]
  7. ATIVAN [Concomitant]
  8. MAGNESIUM OXIDE [Concomitant]
  9. ERLOTINIB HYDROCHLORIDE [Suspect]
     Indication: NON-SMALL CELL LUNG CANCER
     Dosage: 150 MG, UID/QD, ORAL
     Route: 048
     Dates: start: 20101119, end: 20101228
  10. PREDNISONE [Concomitant]
  11. ZITHROMAX [Concomitant]
  12. SORAFENIB (SORAFENIB) [Suspect]
     Indication: NON-SMALL CELL LUNG CANCER
     Dosage: 400 MG, BID, ORAL
     Route: 048
     Dates: start: 20101203, end: 20101228
  13. RESTORIL (TEMAZEPAN) [Concomitant]
  14. LANTUS [Concomitant]

REACTIONS (11)
  - CARDIAC FAILURE ACUTE [None]
  - DEPRESSED LEVEL OF CONSCIOUSNESS [None]
  - PNEUMONIA ASPIRATION [None]
  - THROMBOCYTOPENIA [None]
  - CAROTID ARTERY STENOSIS [None]
  - ENCEPHALOMALACIA [None]
  - ACUTE RESPIRATORY FAILURE [None]
  - HYPERLIPIDAEMIA [None]
  - CANDIDIASIS [None]
  - CEREBROVASCULAR ACCIDENT [None]
  - HYPOTHYROIDISM [None]
